FAERS Safety Report 8097722-0 (Version None)
Quarter: 2012Q1

REPORT INFORMATION
  Report Type: 
  Country: None (occurrence: None)
  Receive Date: 20120128
  Receipt Date: 20110714
  Transmission Date: 20120608
  Serious: No
  Sender: FDA-Public Use
  Company Number: US-ABBOTT-11P-163-0838969-00

PATIENT
  Age: 49 Year
  Sex: Male

DRUGS (6)
  1. HUMIRA [Suspect]
     Indication: PSORIASIS
     Dates: start: 20110516
  2. CALCIUM +D [Concomitant]
     Indication: PRODUCT USED FOR UNKNOWN INDICATION
  3. GABAPENTIN [Concomitant]
     Indication: NEURALGIA
  4. CLOTRIAMIZOLE [Concomitant]
     Indication: RASH
  5. GABAPENTIN [Concomitant]
  6. FLUOCINONIDE [Concomitant]
     Indication: PSORIASIS

REACTIONS (1)
  - PSORIASIS [None]
